FAERS Safety Report 6773643-8 (Version None)
Quarter: 2010Q2

REPORT INFORMATION
  Report Type: 
  Country: None (occurrence: None)
  Receive Date: 20100614
  Receipt Date: 20100604
  Transmission Date: 20101027
  Serious: No
  Sender: FDA-Public Use
  Company Number: 009299

PATIENT
  Age: 84 Year
  Sex: Male

DRUGS (1)
  1. PLETAL [Suspect]
     Dosage: ORAL
     Route: 048
     Dates: start: 20080101

REACTIONS (8)
  - ANGINA UNSTABLE [None]
  - CONDITION AGGRAVATED [None]
  - CORONARY ARTERY STENOSIS [None]
  - ELECTROCARDIOGRAM ST SEGMENT ELEVATION [None]
  - LERICHE SYNDROME [None]
  - LIVER DISORDER [None]
  - PULMONARY FIBROSIS [None]
  - THROMBOSIS IN DEVICE [None]
